FAERS Safety Report 8499921 (Version 3)
Quarter: 2013Q3

REPORT INFORMATION
  Report Type: Spontaneous
  Country: JP (occurrence: JP)
  Receive Date: 20120409
  Receipt Date: 20130906
  Transmission Date: 20140515
  Serious: Yes (Other)
  Sender: FDA-Public Use
  Company Number: PHHY2012JP029426

PATIENT
  Age: 68 Year
  Sex: Male
  Weight: 67 kg

DRUGS (8)
  1. EVEROLIMUS [Suspect]
     Indication: RENAL CELL CARCINOMA
     Dosage: 10 MG, DAILY
     Route: 048
     Dates: start: 20110502, end: 20110524
  2. EVEROLIMUS [Suspect]
     Dosage: 5 MG, DAILY
     Route: 048
     Dates: start: 20110608, end: 20110815
  3. LASIX [Concomitant]
     Dosage: 20 MG
     Route: 048
  4. AZUNOL [Concomitant]
     Indication: PROPHYLAXIS
     Dosage: 2 DF
     Route: 048
     Dates: start: 20110502
  5. CODEINE PHOSPHATE [Concomitant]
     Dosage: 60 MG
     Route: 048
  6. DEPAKENE [Concomitant]
     Indication: EPILEPSY
     Dosage: 800 MG
     Route: 048
  7. LIVALO [Concomitant]
     Indication: HYPERLIPIDAEMIA
     Dosage: 1 MG
     Route: 048
  8. INSULIN [Concomitant]
     Indication: DIABETES MELLITUS
     Dosage: 22 IU

REACTIONS (4)
  - Metastatic renal cell carcinoma [Not Recovered/Not Resolved]
  - Malignant neoplasm progression [Not Recovered/Not Resolved]
  - Lipase increased [Unknown]
  - Interstitial lung disease [Unknown]
